FAERS Safety Report 10233751 (Version 2)
Quarter: 2014Q2

REPORT INFORMATION
  Report Type: Spontaneous
  Country: JP (occurrence: None)
  Receive Date: 20140610
  Receipt Date: 20140616
  Transmission Date: 20141212
  Serious: Yes (Other)
  Sender: FDA-Public Use
  Company Number: 2014149205

PATIENT
  Age: 39 Year
  Sex: Male

DRUGS (2)
  1. UNASYN S (AMPICILLIN SODIUM,SULBACTAM SODIUM) [Suspect]
  2. DALACIN [Suspect]

REACTIONS (3)
  - Stevens-Johnson syndrome [None]
  - Urticaria [None]
  - Skin lesion [None]
